FAERS Safety Report 21454521 (Version 9)
Quarter: 2023Q4

REPORT INFORMATION
  Report Type: Spontaneous
  Country: JP (occurrence: JP)
  Receive Date: 20221013
  Receipt Date: 20231228
  Transmission Date: 20240110
  Serious: Yes (Other)
  Sender: FDA-Public Use
  Company Number: JP-BRISTOL-MYERS SQUIBB COMPANY-BMS-2021-054287

PATIENT
  Age: 60 Year
  Sex: Female

DRUGS (12)
  1. YERVOY [Suspect]
     Active Substance: IPILIMUMAB
     Indication: Non-small cell lung cancer recurrent
     Dosage: UNK
     Route: 041
     Dates: start: 20210107, end: 20210218
  2. YERVOY [Suspect]
     Active Substance: IPILIMUMAB
     Indication: Sarcomatoid carcinoma of the lung
     Dosage: UNK
     Route: 041
     Dates: start: 20210128
  3. YERVOY [Suspect]
     Active Substance: IPILIMUMAB
     Dosage: UNK
     Route: 041
     Dates: start: 20210218
  4. YERVOY [Suspect]
     Active Substance: IPILIMUMAB
     Dosage: UNK
     Route: 041
     Dates: start: 20210401, end: 20210513
  5. OPDIVO [Suspect]
     Active Substance: NIVOLUMAB
     Indication: Non-small cell lung cancer recurrent
     Dosage: UNK
     Route: 041
     Dates: start: 20210107, end: 20210218
  6. OPDIVO [Suspect]
     Active Substance: NIVOLUMAB
     Indication: Sarcomatoid carcinoma of the lung
     Dosage: UNK
     Route: 041
     Dates: start: 20210128
  7. OPDIVO [Suspect]
     Active Substance: NIVOLUMAB
     Dosage: UNK
     Route: 041
     Dates: start: 20210218
  8. OPDIVO [Suspect]
     Active Substance: NIVOLUMAB
     Dosage: UNK
     Route: 041
     Dates: start: 20210401, end: 20210513
  9. CARBOPLATIN [Suspect]
     Active Substance: CARBOPLATIN
     Indication: Non-small cell lung cancer recurrent
     Dosage: UNK
     Dates: start: 20210107, end: 20210107
  10. CARBOPLATIN [Suspect]
     Active Substance: CARBOPLATIN
     Indication: Sarcomatoid carcinoma of the lung
     Dosage: 80 PERCENT DOSE
     Dates: start: 20210128, end: 20210128
  11. PACLITAXEL [Suspect]
     Active Substance: PACLITAXEL
     Indication: Non-small cell lung cancer recurrent
     Dosage: UNK
     Dates: start: 20210107, end: 20210107
  12. PACLITAXEL [Suspect]
     Active Substance: PACLITAXEL
     Indication: Sarcomatoid carcinoma of the lung
     Dosage: 80 PERCENT DOSE
     Dates: start: 20210128, end: 20210128

REACTIONS (5)
  - Neutropenia [Recovering/Resolving]
  - Neuropathy peripheral [Recovering/Resolving]
  - Immune-mediated hepatic disorder [Unknown]
  - Decreased appetite [Recovering/Resolving]
  - Malaise [Recovered/Resolved]

NARRATIVE: CASE EVENT DATE: 20210128
